FAERS Safety Report 22122982 (Version 1)
Quarter: 2023Q1

REPORT INFORMATION
  Report Type: Spontaneous
  Country: CH (occurrence: CH)
  Receive Date: 20230322
  Receipt Date: 20230322
  Transmission Date: 20230418
  Serious: Yes (Other)
  Sender: FDA-Public Use
  Company Number: CH-NOVEN PHARMACEUTICALS, INC.-2023-NOV-CH000256

PATIENT
  Age: 29 Year
  Sex: Female

DRUGS (3)
  1. METHYLPHENIDATE [Suspect]
     Active Substance: METHYLPHENIDATE
     Indication: Product used for unknown indication
     Dosage: 80 MG, UNKNOWN
     Route: 045
  2. METHYLPHENIDATE [Suspect]
     Active Substance: METHYLPHENIDATE
     Dosage: 40-60 MG, DAILY
     Route: 048
  3. METHYLPHENIDATE [Suspect]
     Active Substance: METHYLPHENIDATE
     Dosage: 20 MG, DAILY
     Route: 065

REACTIONS (2)
  - Drug abuse [Unknown]
  - Intentional overdose [Unknown]
